FAERS Safety Report 4386826-1 (Version None)
Quarter: 2004Q2

REPORT INFORMATION
  Report Type: 
  Country: None (occurrence: None)
  Receive Date: 20040622
  Receipt Date: 20040607
  Transmission Date: 20050107
  Serious: Yes (Hospitalization)
  Sender: FDA-Public Use
  Company Number: F01200401321

PATIENT
  Age: 68 Year
  Sex: Female

DRUGS (9)
  1. OXALIPLATIN - SOLUTION - 130 MG/M2 [Suspect]
     Indication: COLORECTAL CANCER METASTATIC
     Dosage: 130 MG/M2 Q3W INTRAVENOUS NOS
     Route: 042
     Dates: start: 20040519, end: 20040519
  2. CAPECITABINE - TABLET - 1000 MG/M2 [Suspect]
     Dosage: 1000 MG/M2 TWICE DAILY FROM D1 TO D14, Q3W ORAL
     Route: 048
     Dates: start: 20040519, end: 20040527
  3. BEVACIZUMAB - 1 UNIT [Suspect]
     Dosage: 1 UNIT Q3W INTRA CORPUS CAVERNOSUM
     Route: 011
     Dates: start: 20040519, end: 20040519
  4. COUMADIN [Concomitant]
  5. COMPAZINE [Concomitant]
  6. CELEXA (CITALOPRAM HYDROBROMIDE) [Concomitant]
  7. METOPROLOL TARTRATE [Concomitant]
  8. LORTAB [Concomitant]
  9. PROTONIX [Concomitant]

REACTIONS (9)
  - BLOOD CHLORIDE INCREASED [None]
  - BLOOD SODIUM DECREASED [None]
  - DEHYDRATION [None]
  - DIARRHOEA [None]
  - MARKEDLY REDUCED DIETARY INTAKE [None]
  - NAUSEA [None]
  - PCO2 INCREASED [None]
  - RENAL FAILURE ACUTE [None]
  - WEIGHT DECREASED [None]
